FAERS Safety Report 20777040 (Version 1)
Quarter: 2022Q2

REPORT INFORMATION
  Report Type: Spontaneous
  Country: AR (occurrence: AR)
  Receive Date: 20220503
  Receipt Date: 20220503
  Transmission Date: 20220721
  Serious: Yes (Hospitalization, Other)
  Sender: FDA-Public Use
  Company Number: AR-Accord-261201

PATIENT
  Age: 80 Year
  Sex: Male

DRUGS (14)
  1. DAPTOMYCIN [Suspect]
     Active Substance: DAPTOMYCIN
     Indication: Endocarditis
     Dosage: 10 MG/KG/24 H (DOSE-900 MG/24 H)
  2. VANCOMYCIN [Suspect]
     Active Substance: VANCOMYCIN
     Indication: Pneumonia
  3. MEROPENEM [Concomitant]
     Active Substance: MEROPENEM
     Indication: Pneumonia
  4. PANTOPRAZOLE [Concomitant]
     Active Substance: PANTOPRAZOLE
  5. RIVAROXABAN [Concomitant]
     Active Substance: RIVAROXABAN
  6. CILOSTAZOL [Concomitant]
     Active Substance: CILOSTAZOL
  7. .ALPHA.-LIPOIC ACID [Concomitant]
     Active Substance: .ALPHA.-LIPOIC ACID
  8. AMLODIPINE [Concomitant]
     Active Substance: AMLODIPINE BESYLATE
  9. MELATONIN [Concomitant]
     Active Substance: MELATONIN
  10. EZETIMIBE [Concomitant]
     Active Substance: EZETIMIBE
  11. FENOFIBRATE [Concomitant]
     Active Substance: FENOFIBRATE
  12. TAMSULOSIN [Concomitant]
     Active Substance: TAMSULOSIN
  13. INSULIN DETEMIR [Concomitant]
     Active Substance: INSULIN DETEMIR
  14. CEFEPIME [Concomitant]
     Active Substance: CEFEPIME HYDROCHLORIDE
     Indication: Endocarditis
     Dosage: 2 G EVERY 8 HOURS

REACTIONS (3)
  - Myoclonus [Recovered/Resolved]
  - Renal impairment [Recovered/Resolved]
  - Asterixis [Recovered/Resolved]
